FAERS Safety Report 18605010 (Version 1)
Quarter: 2020Q4

REPORT INFORMATION
  Report Type: Spontaneous
  Country: US (occurrence: US)
  Receive Date: 20201211
  Receipt Date: 20201211
  Transmission Date: 20210114
  Serious: Yes (Other)
  Sender: FDA-Public Use
  Company Number: None

PATIENT
  Age: 65 Year
  Sex: Male
  Weight: 69.75 kg

DRUGS (9)
  1. VITAMIN B [Concomitant]
     Active Substance: VITAMIN B
  2. CLARITIN [Concomitant]
     Active Substance: LORATADINE
  3. NADOLOL. [Concomitant]
     Active Substance: NADOLOL
  4. PROTONICS [Concomitant]
  5. LIALDA [Concomitant]
     Active Substance: MESALAMINE
  6. VITAMIN D [Concomitant]
     Active Substance: VITAMIN D NOS
  7. DICLOFENAC SODIUM TOPICAL GEL 1% [Suspect]
     Active Substance: DICLOFENAC SODIUM
     Indication: ARTHRITIS
     Route: 061
     Dates: start: 20201107, end: 20201112
  8. MERCAPTOPURINE. [Concomitant]
     Active Substance: MERCAPTOPURINE
  9. LISINOPRIL. [Concomitant]
     Active Substance: LISINOPRIL

REACTIONS (5)
  - Wound [None]
  - Wound secretion [None]
  - Manufacturing issue [None]
  - Haemorrhage [None]
  - Application site rash [None]

NARRATIVE: CASE EVENT DATE: 20201111
